FAERS Safety Report 8763332 (Version 2)
Quarter: 2012Q4

REPORT INFORMATION
  Report Type: 
  Country: US (occurrence: US)
  Receive Date: 20120831
  Receipt Date: 20121109
  Transmission Date: 20130627
  Serious: Yes (Other)
  Sender: FDA-Public Use
  Company Number: US-PFIZER INC-2012213437

PATIENT
  Age: 73 Year
  Sex: Female
  Weight: 111 kg

DRUGS (5)
  1. SUTENT [Suspect]
     Indication: LEIOMYOSARCOMA
     Dosage: 50 mg, once a day
     Route: 048
     Dates: start: 20120107, end: 20120204
  2. SUTENT [Suspect]
     Indication: CANCER
     Dosage: 50 mg, once a day
     Route: 048
     Dates: start: 2012
  3. WARFARIN [Concomitant]
     Dosage: 3 mg, UNK
  4. OMEPRAZOLE [Concomitant]
     Dosage: UNK
  5. POTASSIUM PHOSPHATE [Concomitant]
     Dosage: UNK, 2x/day

REACTIONS (6)
  - Urinary tract infection [Recovered/Resolved]
  - Blood electrolytes decreased [Unknown]
  - Diarrhoea [Not Recovered/Not Resolved]
  - Body height decreased [Unknown]
  - Off label use [Unknown]
  - Weight increased [Unknown]
